FAERS Safety Report 14448220 (Version 2)
Quarter: 2018Q1

REPORT INFORMATION
  Report Type: Report from Study
  Country: US (occurrence: US)
  Receive Date: 20180126
  Receipt Date: 20180316
  Transmission Date: 20180509
  Serious: Yes (Hospitalization, Other)
  Sender: FDA-Public Use
  Company Number: US-ACTELION-A-NJ2018-166330

PATIENT
  Age: 70 Year
  Sex: Male
  Weight: 100.23 kg

DRUGS (4)
  1. DARZALEX [Suspect]
     Active Substance: DARATUMUMAB
     Indication: PRODUCT USED FOR UNKNOWN INDICATION
     Route: 042
  2. VELETRI [Suspect]
     Active Substance: EPOPROSTENOL
     Indication: PULMONARY HYPERTENSION
     Dosage: 4 NG/KG, PER MIN
     Route: 042
  3. XARELTO [Concomitant]
     Active Substance: RIVAROXABAN
  4. SILDENAFIL CITRATE. [Concomitant]
     Active Substance: SILDENAFIL CITRATE

REACTIONS (5)
  - Platelet count decreased [Unknown]
  - Plasma cell myeloma [Unknown]
  - Dyspnoea [Unknown]
  - Atrial septal defect repair [Unknown]
  - Pain in jaw [Unknown]
